FAERS Safety Report 4754153-6 (Version None)
Quarter: 2005Q3

REPORT INFORMATION
  Report Type: 
  Country: None (occurrence: None)
  Receive Date: 20050826
  Receipt Date: 19960318
  Transmission Date: 20060218
  Serious: Yes (Hospitalization)
  Sender: FDA-Public Use
  Company Number: JP-ABBOTT-05P-087-0306435-00

PATIENT
  Age: 62 Year
  Sex: Female

DRUGS (6)
  1. ERYTHROCIN [Suspect]
     Indication: BRONCHITIS CHRONIC
     Route: 048
     Dates: start: 19930518, end: 19930908
  2. ESTRIOL [Suspect]
     Indication: MENOPAUSAL SYMPTOMS
     Route: 048
     Dates: start: 19930706, end: 19930908
  3. MEQUITAZINE [Concomitant]
     Indication: RHINITIS ALLERGIC
     Route: 048
     Dates: start: 19930518, end: 19930908
  4. PARACETAMOL [Concomitant]
     Indication: NASOPHARYNGITIS
     Route: 048
     Dates: start: 19930722, end: 19930726
  5. PARACETAMOL [Concomitant]
     Route: 048
     Dates: start: 19930706, end: 19930711
  6. PARACETAMOL [Concomitant]
     Route: 048
     Dates: start: 19930720, end: 19930727

REACTIONS (3)
  - HYPERSENSITIVITY [None]
  - LUNG INFILTRATION [None]
  - PULMONARY EOSINOPHILIA [None]
